FAERS Safety Report 7874081-7 (Version None)
Quarter: 2011Q4

REPORT INFORMATION
  Report Type: 
  Country: None (occurrence: None)
  Receive Date: 20111030
  Receipt Date: 20110513
  Transmission Date: 20120403
  Serious: No
  Sender: FDA-Public Use
  Company Number: US-AMGEN-USASP2011025017

PATIENT
  Sex: Male

DRUGS (2)
  1. ENBREL [Suspect]
     Indication: RHEUMATOID ARTHRITIS
     Dosage: 25 MG, 2 TIMES/WK
  2. ENBREL [Suspect]
     Dosage: 50 MG, QWK

REACTIONS (3)
  - PAIN [None]
  - DRUG EFFECT DECREASED [None]
  - INJECTION SITE PAIN [None]
